FAERS Safety Report 5151985-X (Version None)
Quarter: 2006Q4

REPORT INFORMATION
  Report Type: 
  Country: None (occurrence: None)
  Receive Date: 20061109
  Receipt Date: 20061025
  Transmission Date: 20070319
  Serious: Yes (Hospitalization, Other)
  Sender: FDA-Public Use
  Company Number: 148565ISR

PATIENT
  Age: 32 Year
  Sex: Female

DRUGS (1)
  1. METOPROLOL [Suspect]

REACTIONS (2)
  - ADRENAL CORTEX NECROSIS [None]
  - PHAEOCHROMOCYTOMA [None]
